FAERS Safety Report 5829508-9 (Version None)
Quarter: 2008Q3

REPORT INFORMATION
  Report Type: 
  Country: None (occurrence: None)
  Receive Date: 20080729
  Receipt Date: 20080714
  Transmission Date: 20090109
  Serious: No
  Sender: FDA-Public Use
  Company Number: US023818

PATIENT
  Age: 69 Year
  Sex: Female
  Weight: 74.8435 kg

DRUGS (15)
  1. FENTORA [Suspect]
     Indication: BACK PAIN
     Dosage: 800 UG QID BUCCAL
     Route: 002
     Dates: start: 20070101
  2. FENTORA [Suspect]
     Indication: PAIN IN EXTREMITY
     Dosage: 800 UG QID BUCCAL
     Route: 002
     Dates: start: 20070101
  3. DURAGESIC-100 [Concomitant]
  4. CYMBALTA [Concomitant]
  5. LYRICA [Concomitant]
  6. ZOLPIDEM [Concomitant]
  7. FOLIC ACID [Concomitant]
  8. FUROSEMIDE [Concomitant]
  9. PAROXETINE HCL [Concomitant]
  10. OMEPRAZOLE [Concomitant]
  11. WARFARIN SODIUM [Concomitant]
  12. HYDROCORTISONE [Concomitant]
  13. CALCIUM [Concomitant]
  14. CENTRUM /00554501/ [Concomitant]
  15. VITRON-C [Concomitant]

REACTIONS (2)
  - DENTAL CARIES [None]
  - SOMNOLENCE [None]
